FAERS Safety Report 7690141-8 (Version None)
Quarter: 2011Q3

REPORT INFORMATION
  Report Type: 
  Country: None (occurrence: None)
  Receive Date: 20110818
  Receipt Date: 20110808
  Transmission Date: 20111222
  Serious: Yes (Hospitalization, Other)
  Sender: FDA-Public Use
  Company Number: US-JNJFOC-20110804440

PATIENT
  Age: 62 Year
  Sex: Male
  Weight: 71 kg

DRUGS (2)
  1. TEMSIROLIMUS [Suspect]
     Indication: SQUAMOUS CELL CARCINOMA
     Route: 042
     Dates: start: 20100621, end: 20110606
  2. DOXORUBICIN HCL [Suspect]
     Indication: SQUAMOUS CELL CARCINOMA
     Route: 042
     Dates: start: 20100621, end: 20110516

REACTIONS (7)
  - HYPOCALCAEMIA [None]
  - LYMPHOPENIA [None]
  - HYPONATRAEMIA [None]
  - NAUSEA [None]
  - HYPOKALAEMIA [None]
  - VOMITING [None]
  - HAEMOGLOBIN DECREASED [None]
